FAERS Safety Report 8967071 (Version 2)
Quarter: 2012Q4

REPORT INFORMATION
  Report Type: 
  Country: FI (occurrence: FI)
  Receive Date: 20121214
  Receipt Date: 20121227
  Transmission Date: 20130627
  Serious: Yes (Hospitalization)
  Sender: FDA-Public Use
  Company Number: FI-ABBOTT-12P-055-1019975-00

PATIENT
  Age: 80 Year
  Sex: Male

DRUGS (14)
  1. PROCREN [Suspect]
     Indication: PROSTATE CANCER
  2. ENANTONE [Concomitant]
     Indication: PRODUCT USED FOR UNKNOWN INDICATION
  3. LYRICA [Concomitant]
     Indication: PRODUCT USED FOR UNKNOWN INDICATION
  4. MINISUN [Concomitant]
     Indication: PRODUCT USED FOR UNKNOWN INDICATION
  5. NEUROBION FORTE [Concomitant]
     Indication: PRODUCT USED FOR UNKNOWN INDICATION
  6. OLANZAPIN [Concomitant]
     Indication: PRODUCT USED FOR UNKNOWN INDICATION
     Dosage: Dose to be increased
  7. SEROQUEL [Concomitant]
     Indication: PRODUCT USED FOR UNKNOWN INDICATION
     Dosage: Dose will be decreased
  8. TARGINIQ [Concomitant]
     Indication: PRODUCT USED FOR UNKNOWN INDICATION
  9. TEMESTA [Concomitant]
     Indication: PRODUCT USED FOR UNKNOWN INDICATION
  10. TENOX [Concomitant]
     Indication: PRODUCT USED FOR UNKNOWN INDICATION
  11. THYROXIN [Concomitant]
     Indication: PRODUCT USED FOR UNKNOWN INDICATION
  12. MOBILAT [Concomitant]
     Indication: PRODUCT USED FOR UNKNOWN INDICATION
  13. PANADOL [Concomitant]
     Indication: PRODUCT USED FOR UNKNOWN INDICATION
  14. OMEPRAZOL [Concomitant]
     Indication: PRODUCT USED FOR UNKNOWN INDICATION

REACTIONS (6)
  - Aggression [Not Recovered/Not Resolved]
  - Restlessness [Not Recovered/Not Resolved]
  - Paranoia [Not Recovered/Not Resolved]
  - Mood swings [Not Recovered/Not Resolved]
  - Poor quality sleep [Not Recovered/Not Resolved]
  - Confusional state [Not Recovered/Not Resolved]
